FAERS Safety Report 7654229-X (Version None)
Quarter: 2011Q3

REPORT INFORMATION
  Report Type: 
  Country: None (occurrence: None)
  Receive Date: 20110802
  Receipt Date: 20110802
  Transmission Date: 20111222
  Serious: Yes (Other)
  Sender: FDA-Public Use
  Company Number: None

PATIENT

DRUGS (1)
  1. LEVOTHYROXINE SODIUM [Suspect]
     Dosage: 88 MCG QD PO
     Route: 048
     Dates: start: 20100204, end: 20100309

REACTIONS (2)
  - OEDEMA [None]
  - FATIGUE [None]
